FAERS Safety Report 6518685-2 (Version None)
Quarter: 2009Q4

REPORT INFORMATION
  Report Type: 
  Country: None (occurrence: None)
  Receive Date: 20091228
  Receipt Date: 20091221
  Transmission Date: 20100525
  Serious: Yes (Hospitalization)
  Sender: FDA-Public Use
  Company Number: AT-ROCHE-675967

PATIENT
  Sex: Female
  Weight: 68 kg

DRUGS (1)
  1. TAMIFLU [Suspect]
     Indication: DRUG USE FOR UNKNOWN INDICATION
     Route: 048
     Dates: start: 20091117, end: 20091119

REACTIONS (4)
  - HALLUCINATION, AUDITORY [None]
  - HALLUCINATION, TACTILE [None]
  - HALLUCINATION, VISUAL [None]
  - HEPATIC ENZYME ABNORMAL [None]
